FAERS Safety Report 4417239-1 (Version None)
Quarter: 2004Q3

REPORT INFORMATION
  Report Type: 
  Country: None (occurrence: None)
  Receive Date: 20040802
  Receipt Date: 20040720
  Transmission Date: 20050211
  Serious: No
  Sender: FDA-Public Use
  Company Number: A034591

PATIENT
  Age: 6 Year
  Sex: Male
  Weight: 17.2367 kg

DRUGS (5)
  1. ZYRTEC [Suspect]
     Indication: RHINITIS ALLERGIC
     Dosage: 5 MG (1 IN 1 D), ORAL
     Route: 048
     Dates: start: 20000831, end: 20000921
  2. DIMETAPP [Concomitant]
  3. MOMETASONE FUROATE [Concomitant]
  4. ALLERGENS (ALLERGENS) [Concomitant]
  5. DEXTROMETHORPHAN (DEXTROMETHORPHAN) [Concomitant]

REACTIONS (15)
  - CONFUSIONAL STATE [None]
  - DISORIENTATION [None]
  - DYSKINESIA [None]
  - EYE MOVEMENT DISORDER [None]
  - EYE PAIN [None]
  - EYELID FUNCTION DISORDER [None]
  - HEAD LAG [None]
  - HEADACHE [None]
  - INITIAL INSOMNIA [None]
  - INSOMNIA [None]
  - MUSCLE TWITCHING [None]
  - OCULOGYRATION [None]
  - PAIN [None]
  - ROAD TRAFFIC ACCIDENT [None]
  - VISUAL FIELD DEFECT [None]
